FAERS Safety Report 7527470-4 (Version None)
Quarter: 2011Q2

REPORT INFORMATION
  Report Type: 
  Country: None (occurrence: None)
  Receive Date: 20110527
  Receipt Date: 20110516
  Transmission Date: 20111010
  Serious: Yes (Death, Hospitalization)
  Sender: FDA-Public Use
  Company Number: UTC-006394

PATIENT
  Age: 48 Year
  Sex: Female
  Weight: 75 kg

DRUGS (10)
  1. ADCIRCA [Concomitant]
  2. PREDNISONE [Concomitant]
  3. TYVASO [Suspect]
     Indication: PULMONARY ARTERIAL HYPERTENSION
     Dosage: 72 MCG (18 MCG, 4 IN 1 D) INHALATION
     Route: 055
     Dates: start: 20110216
  4. DIGOXIN [Concomitant]
  5. GABAPENTIN [Concomitant]
  6. LASIX [Concomitant]
  7. PANTOPRAZOLE [Concomitant]
  8. DIURETICS (DIURETICS) [Concomitant]
  9. TRACLEER [Concomitant]
  10. METOLAZONE [Concomitant]

REACTIONS (9)
  - RESPIRATORY ACIDOSIS [None]
  - RENAL FAILURE ACUTE [None]
  - CARDIAC ARREST [None]
  - PULSELESS ELECTRICAL ACTIVITY [None]
  - HYPOTENSION [None]
  - UNRESPONSIVE TO STIMULI [None]
  - CONTINUOUS HAEMODIAFILTRATION [None]
  - METABOLIC ACIDOSIS [None]
  - HAEMOGLOBIN DECREASED [None]
